FAERS Safety Report 14909705 (Version 1)
Quarter: 2018Q2

REPORT INFORMATION
  Report Type: Spontaneous
  Country: US (occurrence: US)
  Receive Date: 20180430
  Receipt Date: 20180430
  Transmission Date: 20180711
  Serious: Yes (Hospitalization, Other)
  Sender: FDA-Public Use
  Company Number: None

PATIENT
  Age: 45 Year
  Sex: Female
  Weight: 76.5 kg

DRUGS (1)
  1. QUETIAPINE FUMARATE. [Suspect]
     Active Substance: QUETIAPINE FUMARATE
     Indication: BIPOLAR DISORDER
     Dosage: ?          QUANTITY:3 TABLET(S);?
     Route: 048
     Dates: start: 20180401, end: 20180423

REACTIONS (5)
  - Blood magnesium decreased [None]
  - Suicide attempt [None]
  - Blood potassium decreased [None]
  - Heart rate irregular [None]
  - Cardiac murmur [None]

NARRATIVE: CASE EVENT DATE: 20180430
